FAERS Safety Report 24872844 (Version 3)
Quarter: 2025Q1

REPORT INFORMATION
  Report Type: Spontaneous
  Country: US (occurrence: US)
  Receive Date: 20250122
  Receipt Date: 20250303
  Transmission Date: 20250409
  Serious: Yes (Death)
  Sender: VERO BIOTECH
  Company Number: US-VEROBIOTECH-2025USVEROSPO00005

PATIENT
  Age: 27 Week

DRUGS (1)
  1. GENOSYL [Suspect]
     Active Substance: NITRIC OXIDE
     Indication: Product used for unknown indication

REACTIONS (4)
  - Death [Fatal]
  - Pulmonary haemorrhage [Fatal]
  - Oxygen saturation decreased [Fatal]
  - Device issue [Unknown]
